FAERS Safety Report 7112912-9 (Version None)
Quarter: 2010Q4

REPORT INFORMATION
  Report Type: 
  Country: None (occurrence: None)
  Receive Date: 20101119
  Receipt Date: 20100708
  Transmission Date: 20110411
  Serious: No
  Sender: FDA-Public Use
  Company Number: US-BRISTOL-MYERS SQUIBB COMPANY-15175219

PATIENT
  Sex: Male

DRUGS (1)
  1. AVALIDE [Suspect]
     Indication: HYPERTENSION
     Dosage: 1 DF = 300/25 UNIT NOT MENTIONED.TAKEN FOR YEARS;

REACTIONS (1)
  - BLOOD PRESSURE INCREASED [None]
